FAERS Safety Report 6604198-6 (Version None)
Quarter: 2010Q1

REPORT INFORMATION
  Report Type: 
  Country: None (occurrence: None)
  Receive Date: 20100226
  Receipt Date: 20090708
  Transmission Date: 20100710
  Serious: Yes (Other)
  Sender: FDA-Public Use
  Company Number: A0794871A

PATIENT
  Sex: Female

DRUGS (1)
  1. LAMICTAL CD [Suspect]
     Indication: EPILEPSY
     Dosage: 100MG TWICE PER DAY
     Route: 048
     Dates: start: 20081101

REACTIONS (1)
  - COMPLEX PARTIAL SEIZURES [None]
